FAERS Safety Report 20543138 (Version 2)
Quarter: 2022Q1

REPORT INFORMATION
  Report Type: Spontaneous
  Country: MK (occurrence: MK)
  Receive Date: 20220302
  Receipt Date: 20220331
  Transmission Date: 20220424
  Serious: Yes (Hospitalization)
  Sender: FDA-Public Use
  Company Number: MK-BIOGEN-2022BI01099680

PATIENT
  Age: 19 Year
  Sex: Female

DRUGS (1)
  1. SPINRAZA [Suspect]
     Active Substance: NUSINERSEN
     Indication: Spinal muscular atrophy
     Dosage: 12MG/5ML?10 APPLICATIONS
     Route: 037
     Dates: start: 201911

REACTIONS (3)
  - Gastrointestinal toxicity [Recovered/Resolved]
  - Post lumbar puncture syndrome [Recovered/Resolved]
  - SARS-CoV-2 test positive [Unknown]

NARRATIVE: CASE EVENT DATE: 20220130
